FAERS Safety Report 15114136 (Version 2)
Quarter: 2018Q3

REPORT INFORMATION
  Report Type: Report from Study
  Country: CH (occurrence: CH)
  Receive Date: 20180706
  Receipt Date: 20180720
  Transmission Date: 20181010
  Serious: Yes (Hospitalization)
  Sender: FDA-Public Use
  Company Number: CH-ROCHE-2148226

PATIENT
  Age: 50 Year
  Sex: Male
  Weight: 37.8 kg

DRUGS (4)
  1. VITAMIN D3 [Concomitant]
     Active Substance: CHOLECALCIFEROL
     Route: 048
     Dates: start: 20180505
  2. OBINUTUZUMAB. [Suspect]
     Active Substance: OBINUTUZUMAB
     Indication: CHRONIC LYMPHOCYTIC LEUKAEMIA
     Dosage: LAST DOSE OF OBINUTUZUMAB 900 PRIOR TO SAE ON 27/JUN/2018?CYCLE 1: 100 MG, D1; 900 MG, D1(2); 1000 M
     Route: 042
     Dates: start: 20180626
  3. ZOLPIDEM [Concomitant]
     Active Substance: ZOLPIDEM\ZOLPIDEM TARTRATE
     Route: 048
     Dates: start: 20180101
  4. TEMESTA (SWITZERLAND) [Concomitant]
     Active Substance: LORAZEPAM
     Route: 048
     Dates: start: 20180101

REACTIONS (1)
  - Cardiac failure [Recovered/Resolved]

NARRATIVE: CASE EVENT DATE: 20180629
